FAERS Safety Report 8278540-7 (Version None)
Quarter: 2012Q2

REPORT INFORMATION
  Report Type: 
  Country: None (occurrence: None)
  Receive Date: 20120412
  Receipt Date: 20111005
  Transmission Date: 20120825
  Serious: No
  Sender: FDA-Public Use
  Company Number: US-ASTRAZENECA-2011SE18518

PATIENT
  Age: 61 Year
  Sex: Female
  Weight: 49.4 kg

DRUGS (9)
  1. PRILOSEC [Suspect]
     Route: 048
  2. TRAZODONE HCL [Concomitant]
  3. CLOZAPINE [Concomitant]
     Indication: AFFECTIVE DISORDER
  4. ZANTAC [Concomitant]
  5. NEXIUM [Suspect]
     Indication: POLYP
     Route: 048
     Dates: start: 20010101
  6. NEXIUM [Suspect]
     Indication: ULCER
     Route: 048
     Dates: start: 20010101
  7. ZOLOFT [Concomitant]
     Indication: DEPRESSION
  8. TOPIRAMATE [Concomitant]
     Indication: MIGRAINE
  9. NEXIUM [Suspect]
     Indication: ABDOMINAL PAIN
     Route: 048
     Dates: start: 20010101

REACTIONS (9)
  - ULCER [None]
  - HYPERSENSITIVITY [None]
  - DRUG INEFFECTIVE FOR UNAPPROVED INDICATION [None]
  - HERNIA [None]
  - POLYP [None]
  - ABDOMINAL PAIN UPPER [None]
  - DRUG INEFFECTIVE [None]
  - NASAL POLYPS [None]
  - OFF LABEL USE [None]
